FAERS Safety Report 9833136 (Version 3)
Quarter: 2014Q1

REPORT INFORMATION
  Report Type: Spontaneous
  Country: US (occurrence: US)
  Receive Date: 20140121
  Receipt Date: 20140304
  Transmission Date: 20141002
  Serious: No
  Sender: FDA-Public Use
  Company Number: US-B.I. PHARMACEUTICALS,INC./RIDGEFIELD-2014-BI-01800BP

PATIENT
  Sex: Male
  Weight: 89 kg

DRUGS (4)
  1. SPIRIVA [Suspect]
     Indication: COUGH
     Dosage: 18 MCG
     Route: 055
     Dates: start: 2013
  2. ETODOLAC [Concomitant]
     Indication: ARTHRITIS
     Dosage: 800 MG
     Route: 048
  3. BLOOD PRESSURE MEDICATION [Concomitant]
     Indication: HYPERTENSION
     Route: 048
  4. ALBUTEROL [Concomitant]
     Indication: PROPHYLAXIS
     Route: 065

REACTIONS (7)
  - Wheezing [Recovered/Resolved]
  - Cough [Recovered/Resolved]
  - Aphonia [Not Recovered/Not Resolved]
  - Cough [Not Recovered/Not Resolved]
  - Wheezing [Not Recovered/Not Resolved]
  - Off label use [Unknown]
  - Product quality issue [Recovered/Resolved]
